FAERS Safety Report 8915521 (Version 2)
Quarter: 2012Q4

REPORT INFORMATION
  Report Type: 
  Country: FR (occurrence: FR)
  Receive Date: 20121119
  Receipt Date: 20121206
  Transmission Date: 20130627
  Serious: Yes (Hospitalization, Other)
  Sender: FDA-Public Use
  Company Number: FR-PFIZER INC-2012284855

PATIENT
  Age: 77 Year
  Sex: Female

DRUGS (6)
  1. TAHOR [Suspect]
     Dosage: 40 mg, daily
     Route: 048
     Dates: start: 201208, end: 20120904
  2. EUPANTOL [Suspect]
     Dosage: 20 mg, daily
     Route: 048
     Dates: start: 201208, end: 20120904
  3. TRIATEC [Suspect]
     Dosage: 1.25 mg, daily
     Route: 048
     Dates: start: 201208, end: 20120904
  4. BACTRIM [Suspect]
     Indication: URINARY TRACT INFECTION
     Dosage: 200/40 mg, Daily
     Route: 048
     Dates: start: 20120822, end: 20120829
  5. PLAVIX [Suspect]
     Dosage: 75 mg, daily
     Route: 048
     Dates: start: 201208, end: 20120904
  6. RECOMBINANT HUMAN ERYTHROPOIETIN [Concomitant]
     Indication: ANAEMIA HAEMOLYTIC AUTOIMMUNE
     Dosage: UNK
     Dates: start: 20120823

REACTIONS (4)
  - Leukopenia [Recovered/Resolved]
  - Agranulocytosis [Recovered/Resolved]
  - Thrombocytopenia [Not Recovered/Not Resolved]
  - Haemolytic anaemia [Not Recovered/Not Resolved]
